FAERS Safety Report 7824925-X (Version None)
Quarter: 2011Q4

REPORT INFORMATION
  Report Type: 
  Country: None (occurrence: None)
  Receive Date: 20111019
  Receipt Date: 20110225
  Transmission Date: 20120403
  Serious: No
  Sender: FDA-Public Use
  Company Number: US-BRISTOL-MYERS SQUIBB COMPANY-15571359

PATIENT
  Age: 47 Year
  Sex: Female

DRUGS (1)
  1. AVALIDE [Suspect]

REACTIONS (4)
  - DIARRHOEA [None]
  - WEIGHT DECREASED [None]
  - HEADACHE [None]
  - VOMITING [None]
